FAERS Safety Report 22181618 (Version 2)
Quarter: 2023Q2

REPORT INFORMATION
  Report Type: Other
  Country: US (occurrence: US)
  Receive Date: 20230406
  Receipt Date: 20230524
  Transmission Date: 20230721
  Serious: Yes (Hospitalization, Other)
  Sender: FDA-Public Use
  Company Number: US-Covis Pharma GmbH-2023COV00811

PATIENT
  Age: 0 Year
  Sex: Female

DRUGS (1)
  1. MAKENA [Suspect]
     Active Substance: HYDROXYPROGESTERONE CAPROATE
     Indication: Foetal exposure during pregnancy
     Route: 064
     Dates: start: 20221208, end: 20230324

REACTIONS (3)
  - Neonatal respiratory distress [Unknown]
  - Critical illness [Unknown]
  - Premature baby [Unknown]

NARRATIVE: CASE EVENT DATE: 20230328
